FAERS Safety Report 17203564 (Version 1)
Quarter: 2019Q4

REPORT INFORMATION
  Report Type: Spontaneous
  Country: US (occurrence: US)
  Receive Date: 20191226
  Receipt Date: 20191226
  Transmission Date: 20200122
  Serious: No
  Sender: FDA-Public Use
  Company Number: US-CATALYST PHARMACEUTICALS, INC-2019CAT00402

PATIENT
  Age: 59 Year
  Sex: Female
  Weight: 61.22 kg

DRUGS (4)
  1. FIRDAPSE [Suspect]
     Active Substance: AMIFAMPRIDINE
     Dosage: 20 MG, 3X/DAY
     Route: 048
     Dates: start: 2019, end: 201909
  2. MULTIVITAMIN [Concomitant]
     Active Substance: VITAMINS
  3. FIRDAPSE [Suspect]
     Active Substance: AMIFAMPRIDINE
     Indication: MYASTHENIC SYNDROME
     Dosage: 5 MG, 1X/DAY
     Route: 048
     Dates: start: 201907, end: 2019
  4. FIRDAPSE [Suspect]
     Active Substance: AMIFAMPRIDINE
     Dosage: UNK (TITRATED DOSE UP)
     Route: 048
     Dates: start: 2019, end: 2019

REACTIONS (3)
  - Feeling abnormal [Recovered/Resolved]
  - Depressed mood [Recovered/Resolved]
  - Asthenia [Recovered/Resolved]

NARRATIVE: CASE EVENT DATE: 201909
